FAERS Safety Report 5078026-7 (Version None)
Quarter: 2006Q3

REPORT INFORMATION
  Report Type: 
  Country: None (occurrence: None)
  Receive Date: 20060808
  Receipt Date: 20060727
  Transmission Date: 20061208
  Serious: Yes (Other)
  Sender: FDA-Public Use
  Company Number: 2006093064

PATIENT
  Sex: Female

DRUGS (2)
  1. XALATAN [Suspect]
     Indication: GLAUCOMA
     Dosage: 3 MCG (1.5 MCG, 2 IN 1 D), OPHTHALMIC
     Route: 047
     Dates: start: 19970101
  2. TRAVORPROST (TRAVOPROST) [Suspect]
     Indication: GLAUCOMA
     Dosage: OPHTHALMIC

REACTIONS (8)
  - BONE PAIN [None]
  - EYE IRRITATION [None]
  - EYE PAIN [None]
  - HYPERTENSION [None]
  - INTRAOCULAR PRESSURE INCREASED [None]
  - RESORPTION BONE INCREASED [None]
  - UNDERDOSE [None]
  - WEIGHT INCREASED [None]
